FAERS Safety Report 8322213-9 (Version None)
Quarter: 2012Q2

REPORT INFORMATION
  Report Type: 
  Country: None (occurrence: None)
  Receive Date: 20120430
  Receipt Date: 20120410
  Transmission Date: 20120825
  Serious: No
  Sender: FDA-Public Use
  Company Number: US-COVIDIEN/TYCO HEALTHCARE/MALLINCKRODT-T201201417

PATIENT
  Sex: Female
  Weight: 61.678 kg

DRUGS (8)
  1. ALPRAZOLAM [Concomitant]
     Indication: ANXIETY
     Dosage: 0.25 MG PRN
     Route: 048
  2. TOPAMAX [Concomitant]
     Indication: MULTIPLE SCLEROSIS
     Dosage: 50 MG (3) Q HS
     Route: 048
  3. HYDROCODONE BITARTRATE + ACETAMINOPHEN [Suspect]
     Indication: PAIN
     Dosage: 10/325 MG, 1 TAB Q 6-8  HOURS
     Dates: start: 20120301, end: 20120322
  4. OXYCODONE HCL [Concomitant]
     Indication: PAIN
     Dosage: 15 MG, 1 Q 6 HOURS
     Route: 048
  5. FLEXERIL [Concomitant]
     Indication: MUSCLE SPASMS
     Dosage: 10 MG Q HS
     Route: 048
  6. CITALOPRAM [Concomitant]
     Indication: DEPRESSION
     Dosage: 20 MG Q DAY
     Route: 048
  7. HYDROCODONE BITARTRATE AND ACETAMINOPHEN [Concomitant]
     Dosage: UNK
     Dates: start: 20120201, end: 20120301
  8. FIORICET [Concomitant]
     Indication: MIGRAINE
     Dosage: 1-2 TABS PRN

REACTIONS (1)
  - FALSE NEGATIVE INVESTIGATION RESULT [None]
